FAERS Safety Report 17254123 (Version 2)
Quarter: 2021Q3

REPORT INFORMATION
  Report Type: Spontaneous
  Country: DE (occurrence: DE)
  Receive Date: 20200109
  Receipt Date: 20210921
  Transmission Date: 20211014
  Serious: Yes (Hospitalization)
  Sender: FDA-Public Use
  Company Number: DE-MYLANLABS-2020M1002085

PATIENT
  Age: 8 Year
  Sex: Female

DRUGS (4)
  1. PHENOBARBITAL. [Concomitant]
     Active Substance: PHENOBARBITAL
     Indication: EPILEPSY
     Dosage: 6.4 MILLIGRAM/KILOGRAM, QD
  2. VALPROIC ACID. [Suspect]
     Active Substance: VALPROIC ACID
     Indication: EPILEPSY
  3. VALPROIC ACID. [Suspect]
     Active Substance: VALPROIC ACID
     Indication: SEIZURE
     Dosage: 25.7 MILLIGRAM/KILOGRAM, QD
  4. PHENOBARBITAL. [Concomitant]
     Active Substance: PHENOBARBITAL
     Indication: EPILEPSY

REACTIONS (4)
  - Lactic acidosis [Recovered/Resolved]
  - Hepatotoxicity [Recovered/Resolved]
  - Drug-induced liver injury [Recovered/Resolved]
  - Depressed level of consciousness [Recovered/Resolved]
